FAERS Safety Report 7199926-8 (Version None)
Quarter: 2010Q4

REPORT INFORMATION
  Report Type: 
  Country: None (occurrence: None)
  Receive Date: 20101228
  Receipt Date: 20101223
  Transmission Date: 20110411
  Serious: No
  Sender: FDA-Public Use
  Company Number: US-PFIZER INC-2010113617

PATIENT
  Sex: Male
  Weight: 86.168 kg

DRUGS (12)
  1. LYRICA [Suspect]
     Indication: CONVULSION
     Dosage: 75 MG, 2X/DAY
     Route: 048
     Dates: start: 20100824
  2. LYRICA [Suspect]
     Dosage: 75 MG, 3X/DAY
     Route: 048
     Dates: start: 20100801
  3. ACETYLSALICYLIC ACID [Concomitant]
     Dosage: 325 MG, ALTERNATE DAY
  4. CALCIUM [Concomitant]
     Dosage: 600 MG, 2X/DAY
  5. CO-Q-10 [Concomitant]
     Dosage: 100 MG, DAILY
  6. LISINOPRIL [Concomitant]
     Indication: HYPERTENSION
     Dosage: 10 MG, DAILY
  7. LOVASTATIN [Concomitant]
     Indication: BLOOD CHOLESTEROL INCREASED
     Dosage: 20 MG, DAILY
  8. METFORMIN [Concomitant]
     Indication: DIABETES MELLITUS
     Dosage: 500 MG, DAILY
  9. LOVAZA [Concomitant]
     Indication: AFFECTIVE DISORDER
     Dosage: 3 DF, 1X/DAY
  10. NEXIUM [Concomitant]
     Indication: DYSPEPSIA
     Dosage: 40 MG, ALTERNATE DAY
  11. CENTRUM [Concomitant]
     Dosage: 2 DF, 1X/DAY
  12. TRAZODONE [Concomitant]
     Indication: DEPRESSION
     Dosage: 50 MG, DAILY

REACTIONS (2)
  - MYALGIA [None]
  - PAIN IN EXTREMITY [None]
